FAERS Safety Report 8210980-4 (Version None)
Quarter: 2012Q1

REPORT INFORMATION
  Report Type: 
  Country: None (occurrence: None)
  Receive Date: 20120315
  Receipt Date: 20120305
  Transmission Date: 20120608
  Serious: No
  Sender: FDA-Public Use
  Company Number: US-B.I. PHARMACEUTICALS,INC./RIDGEFIELD-2012-BP-01511BP

PATIENT
  Sex: Male
  Weight: 90.71 kg

DRUGS (9)
  1. SIMVASTATIN [Concomitant]
     Indication: HYPERCHOLESTEROLAEMIA
     Dosage: 40 MG
     Dates: start: 20050501
  2. SPIRIVA [Suspect]
     Indication: CHRONIC OBSTRUCTIVE PULMONARY DISEASE
     Dosage: 18 MCG
     Route: 055
     Dates: start: 20070301
  3. PLAVIX [Concomitant]
     Indication: CORONARY ARTERY DISEASE
     Dosage: 75 MG
     Dates: start: 20060301
  4. IMDUR [Concomitant]
     Indication: CORONARY ARTERY DISEASE
     Dosage: 60 MG
     Dates: start: 20070501
  5. METOPROLOL SUCCINATE [Concomitant]
     Indication: HYPERTENSION
     Dosage: 100 MG
     Dates: start: 20010501
  6. DIOVAN [Concomitant]
     Indication: HYPERTENSION
     Dosage: 160 MG
     Dates: start: 20001201
  7. JANUVIA [Concomitant]
     Indication: TYPE 2 DIABETES MELLITUS
     Dosage: 100 MG
     Dates: start: 20080901
  8. METFORMIN HCL [Concomitant]
     Indication: TYPE 2 DIABETES MELLITUS
     Dosage: 2000 MG
     Dates: start: 20010801
  9. PAXIL [Concomitant]
     Indication: DEPRESSION
     Dosage: 20 MG
     Dates: start: 20010901

REACTIONS (1)
  - DYSPNOEA [None]
